FAERS Safety Report 8171966-1 (Version None)
Quarter: 2012Q1

REPORT INFORMATION
  Report Type: 
  Country: None (occurrence: None)
  Receive Date: 20120228
  Receipt Date: 20120220
  Transmission Date: 20120608
  Serious: Yes (Hospitalization, Other)
  Sender: FDA-Public Use
  Company Number: JP-B.I. PHARMACEUTICALS,INC./RIDGEFIELD-2012-BP-00434NB

PATIENT
  Sex: Female
  Weight: 42 kg

DRUGS (12)
  1. LOXONIN [Concomitant]
     Indication: DRUG ERUPTION
     Route: 048
     Dates: start: 20111220
  2. ARICEPT [Concomitant]
     Indication: DEMENTIA ALZHEIMER'S TYPE
     Route: 048
     Dates: start: 20111220
  3. LUDIOMIL [Suspect]
     Indication: DEPRESSION
     Route: 048
     Dates: start: 20111220
  4. LANSOPRAZOLE [Concomitant]
     Indication: GASTROOESOPHAGEAL REFLUX DISEASE
     Route: 048
     Dates: start: 20111220
  5. PRAMIPEXOLE DIHYDROCHLORIDE [Suspect]
     Indication: PARKINSON'S DISEASE
     Dosage: 0.125 MG
     Route: 048
     Dates: start: 20111220
  6. NEODOPASOL [Suspect]
     Indication: PARKINSON'S DISEASE
     Route: 048
     Dates: start: 20111220
  7. MOTILIUM [Concomitant]
     Indication: GASTRITIS
     Route: 048
     Dates: start: 20111220
  8. COMTAN [Concomitant]
     Indication: PARKINSON'S DISEASE
     Route: 048
     Dates: start: 20111220
  9. LAC-B [Concomitant]
     Indication: ENTEROCOLITIS
     Dosage: 3 G
     Route: 048
     Dates: start: 20111220
  10. MAGMITT [Concomitant]
     Indication: CONSTIPATION
     Route: 048
     Dates: start: 20111220
  11. DEPAS [Concomitant]
     Indication: INSOMNIA
     Route: 048
     Dates: start: 20111220
  12. SELBEX [Concomitant]
     Indication: GASTRITIS
     Dosage: 1.5 G
     Route: 048
     Dates: start: 20111220

REACTIONS (5)
  - HALLUCINATION [None]
  - THIRST [None]
  - NIGHTMARE [None]
  - WRIST FRACTURE [None]
  - SALIVA ALTERED [None]
